FAERS Safety Report 13752654 (Version 1)
Quarter: 2017Q3

REPORT INFORMATION
  Report Type: Spontaneous
  Country: US (occurrence: US)
  Receive Date: 20170713
  Receipt Date: 20170713
  Transmission Date: 20171127
  Serious: Yes (Life-Threatening, Other)
  Sender: FDA-Public Use
  Company Number: None

PATIENT
  Age: 53 Year
  Sex: Male

DRUGS (2)
  1. TEGADERM [Suspect]
     Active Substance: 2-HYDROXYETHYL METHACRYLATE
     Dosage: OTHER FREQUENCY:PLACE OVER FENTANY;?
     Route: 062
     Dates: start: 20170620, end: 20170708
  2. FENTANYL 75MCG/HR [Suspect]
     Active Substance: FENTANYL
     Indication: PAIN
     Dosage: OTHER FREQUENCY:Q 48 HRS;?
     Route: 062
     Dates: start: 20170620

REACTIONS (5)
  - Wrong technique in product usage process [None]
  - Nausea [None]
  - Product adhesion issue [None]
  - Accidental overdose [None]
  - Vomiting [None]

NARRATIVE: CASE EVENT DATE: 20170708
